FAERS Safety Report 7363492-4 (Version None)
Quarter: 2011Q1

REPORT INFORMATION
  Report Type: 
  Country: None (occurrence: None)
  Receive Date: 20110321
  Receipt Date: 20110317
  Transmission Date: 20110831
  Serious: Yes (Life-Threatening, Hospitalization)
  Sender: FDA-Public Use
  Company Number: DE-BRISTOL-MYERS SQUIBB COMPANY-15522923

PATIENT
  Age: 52 Year
  Sex: Male
  Weight: 58 kg

DRUGS (12)
  1. ALLOPURINOL [Concomitant]
     Indication: HYPERURICAEMIA
  2. VERGENTAN [Concomitant]
     Indication: PROPHYLAXIS
     Dates: start: 20110113
  3. METHYLPREDNISOLONE ACEPONATE [Concomitant]
     Indication: RASH
     Dates: start: 20101021
  4. MAGNESIUM VERLA [Concomitant]
     Indication: HYPOMAGNESAEMIA
     Dates: start: 20101125
  5. CETUXIMAB [Suspect]
     Indication: HEAD AND NECK CANCER
     Dosage: 400 MG/M2:30SEP10-UNK ON DAY 1 OF CYCLE 1 250MG/M2 WEEKLY :ONG LAST DOSE:26JAN11
     Route: 042
     Dates: start: 20100930
  6. PEMETREXED DISODIUM [Suspect]
     Indication: HEAD AND NECK CANCER
     Dosage: LAST DOSE:13JAN11
     Route: 042
     Dates: start: 20100930
  7. VITAMIN B-12 [Concomitant]
     Indication: PROPHYLAXIS
     Dates: start: 20100923
  8. ZOFRAN [Concomitant]
     Indication: PROPHYLAXIS
     Dates: start: 20101222
  9. FOLIC ACID [Concomitant]
     Indication: PROPHYLAXIS
     Dates: start: 20101111
  10. CISPLATIN [Suspect]
     Indication: HEAD AND NECK CANCER
     Dosage: LAST DOSE:13JAN11
     Route: 042
     Dates: start: 20100930
  11. THYRONAJOD [Concomitant]
     Indication: HYPOTHYROIDISM
  12. ULTRALAN [Concomitant]
     Indication: PROPHYLAXIS
     Dates: start: 20101006

REACTIONS (1)
  - PULMONARY EMBOLISM [None]
